FAERS Safety Report 14590250 (Version 3)
Quarter: 2019Q2

REPORT INFORMATION
  Report Type: Spontaneous
  Country: US (occurrence: US)
  Receive Date: 20180302
  Receipt Date: 20190501
  Transmission Date: 20190711
  Serious: Yes (Other)
  Sender: FDA-Public Use
  Company Number: US-PFIZER INC-2018084938

PATIENT
  Age: 76 Year
  Sex: Male
  Weight: 75 kg

DRUGS (5)
  1. OXALIPLATIN. [Suspect]
     Active Substance: OXALIPLATIN
     Indication: CHEMOTHERAPY
     Dosage: UNK UNK, CYCLIC (EVERY 21 DAYS)
     Route: 042
     Dates: start: 201801, end: 201806
  2. OXALIPLATIN. [Interacting]
     Active Substance: OXALIPLATIN
     Indication: GASTRIC CANCER STAGE II
  3. CAPECITABINE. [Interacting]
     Active Substance: CAPECITABINE
     Indication: CHEMOTHERAPY
     Dosage: 1800 MG, DAILY (3 PILLS OF 600MG)
     Route: 048
  4. CENTRUM SILVER +50 [Concomitant]
     Dosage: 1 DF, 1X/DAY
     Route: 048
     Dates: start: 20180222
  5. CAPECITABINE. [Interacting]
     Active Substance: CAPECITABINE
     Indication: GASTRIC CANCER STAGE II
     Dosage: 1500 MG, 2X/DAY (500 MG TAKE 3 TABLETS BY MOUTH TWICE A DAY FOR 14 DAYS)
     Route: 048
     Dates: start: 201801, end: 201806

REACTIONS (14)
  - Neuropathy peripheral [Recovering/Resolving]
  - Thirst [Unknown]
  - Blood pressure increased [Unknown]
  - Paraesthesia [Recovering/Resolving]
  - Weight decreased [Unknown]
  - Feeling of body temperature change [Recovering/Resolving]
  - Peripheral swelling [Recovering/Resolving]
  - Hunger [Unknown]
  - Drug interaction [Unknown]
  - Diarrhoea [Unknown]
  - Trismus [Unknown]
  - Musculoskeletal pain [Not Recovered/Not Resolved]
  - Heart rate increased [Unknown]
  - Tooth injury [Unknown]

NARRATIVE: CASE EVENT DATE: 20180330
